FAERS Safety Report 13110237 (Version 1)
Quarter: 2017Q1

REPORT INFORMATION
  Report Type: Spontaneous
  Country: US (occurrence: US)
  Receive Date: 20170112
  Receipt Date: 20170112
  Transmission Date: 20170428
  Serious: Yes (Hospitalization, Disabling, Other)
  Sender: FDA-Public Use
  Company Number: US-ROCHE-GNE295111

PATIENT
  Age: 54 Year
  Sex: Male

DRUGS (3)
  1. PHENYLEPHRINE [Suspect]
     Active Substance: PHENYLEPHRINE\PHENYLEPHRINE HYDROCHLORIDE
     Indication: BLOOD PRESSURE MEASUREMENT
     Route: 042
  2. HEPARIN [Suspect]
     Active Substance: HEPARIN SODIUM
     Indication: CEREBRAL ARTERY OCCLUSION
     Dosage: 15 U/KG/H, CONTINUOUS, DOSE=15 U/KG/H
     Route: 042
  3. ACTIVASE [Suspect]
     Active Substance: ALTEPLASE
     Indication: CEREBRAL ARTERY OCCLUSION
     Dosage: UNK
     Route: 042

REACTIONS (4)
  - Cerebral artery occlusion [None]
  - Cerebral infarction [None]
  - Haemorrhagic transformation stroke [Unknown]
  - Brain oedema [None]
